FAERS Safety Report 7286195-3 (Version None)
Quarter: 2011Q1

REPORT INFORMATION
  Report Type: 
  Country: None (occurrence: None)
  Receive Date: 20110210
  Receipt Date: 20110129
  Transmission Date: 20110831
  Serious: Yes (Other)
  Sender: FDA-Public Use
  Company Number: PHHO2010US17511

PATIENT
  Sex: Female

DRUGS (3)
  1. BLINDED NO TREATMENT RECEIVED [Suspect]
     Indication: MULTIPLE SCLEROSIS
     Dosage: DOUBLE BLIND
     Route: 048
     Dates: start: 20070101
  2. BLINDED PLACEBO [Suspect]
     Indication: MULTIPLE SCLEROSIS
     Dosage: DOUBLE BLIND
     Route: 048
     Dates: start: 20070101
  3. BLINDED FTY 720 [Suspect]
     Indication: MULTIPLE SCLEROSIS
     Dosage: DOUBLE BLIND
     Route: 048
     Dates: start: 20070101

REACTIONS (2)
  - PAIN IN EXTREMITY [None]
  - SPEECH DISORDER [None]
